FAERS Safety Report 7370702-6 (Version None)
Quarter: 2011Q1

REPORT INFORMATION
  Report Type: 
  Country: None (occurrence: None)
  Receive Date: 20110323
  Receipt Date: 20110307
  Transmission Date: 20110831
  Serious: Yes (Hospitalization)
  Sender: FDA-Public Use
  Company Number: JP-BAYER-2011-012954

PATIENT
  Sex: Male
  Weight: 59 kg

DRUGS (10)
  1. PLAVIX [Suspect]
     Indication: ANGINA PECTORIS
     Dosage: 75 MG, UNK
     Route: 048
     Dates: start: 20100218, end: 20100227
  2. RHUBARB DRY EXTRACT [Concomitant]
     Indication: CONSTIPATION
     Dosage: 1.5 G, UNK
     Route: 048
  3. OMEPRAL [Concomitant]
     Indication: REFLUX OESOPHAGITIS
     Dosage: 20 MG, QD
     Route: 048
  4. ASPIRIN [Suspect]
     Indication: STENT PLACEMENT
     Dosage: 100 MG, QD
     Route: 048
     Dates: start: 20100218, end: 20100227
  5. ASPIRIN [Suspect]
     Indication: ANGINA PECTORIS
  6. ARGAMATE [Concomitant]
     Dosage: 75 MG, QD
     Route: 048
     Dates: end: 20100227
  7. COVERSYL [Concomitant]
     Dosage: 4 MG, QD
     Route: 048
     Dates: end: 20100227
  8. RENAGEL [Concomitant]
     Indication: HYPERPARATHYROIDISM SECONDARY
     Dosage: 2250 MBQ, UNK
     Route: 048
     Dates: end: 20100227
  9. CINACALCET [Concomitant]
     Dosage: 37.5 MG, UNK
     Route: 048
     Dates: end: 20100227
  10. CONIEL [Concomitant]
     Indication: HYPERTENSION
     Dosage: 4 MG, QD
     Route: 048

REACTIONS (2)
  - RENAL HAEMATOMA [None]
  - POST PROCEDURAL HAEMORRHAGE [None]
